FAERS Safety Report 13160458 (Version 1)
Quarter: 2017Q1

REPORT INFORMATION
  Report Type: Spontaneous
  Country: US (occurrence: US)
  Receive Date: 20170128
  Receipt Date: 20170128
  Transmission Date: 20170428
  Serious: No
  Sender: FDA-Public Use
  Company Number: US-TEVA-731164ACC

PATIENT
  Age: 60 Year
  Sex: Female

DRUGS (13)
  1. MELOXICAM. [Concomitant]
     Active Substance: MELOXICAM
  2. FLUDROCORT [Concomitant]
  3. COPAXONE [Suspect]
     Active Substance: GLATIRAMER ACETATE
     Indication: MULTIPLE SCLEROSIS
     Dosage: 20 MILLIGRAM DAILY;
     Route: 058
     Dates: start: 20090317
  4. ALENDRONATE [Concomitant]
     Active Substance: ALENDRONATE SODIUM
  5. BACLOFEN. [Concomitant]
     Active Substance: BACLOFEN
  6. CORTEF [Concomitant]
     Active Substance: HYDROCORTISONE
  7. PROTONIX [Concomitant]
     Active Substance: PANTOPRAZOLE SODIUM
  8. PRILOSEC [Concomitant]
     Active Substance: OMEPRAZOLE MAGNESIUM
  9. ACYCLOVIR. [Concomitant]
     Active Substance: ACYCLOVIR
  10. RANITIDINE. [Concomitant]
     Active Substance: RANITIDINE
  11. MECLIZINE [Concomitant]
     Active Substance: MECLIZINE HYDROCHLORIDE
  12. NOVOLOG [Concomitant]
     Active Substance: INSULIN ASPART
  13. DOCULASE [Concomitant]

REACTIONS (1)
  - Myalgia [Unknown]

NARRATIVE: CASE EVENT DATE: 201612
